FAERS Safety Report 18393904 (Version 1)
Quarter: 2020Q4

REPORT INFORMATION
  Report Type: Spontaneous
  Country: FR (occurrence: FR)
  Receive Date: 20201016
  Receipt Date: 20201016
  Transmission Date: 20210114
  Serious: Yes (Other)
  Sender: FDA-Public Use
  Company Number: FR-MYLANLABS-2020M1086924

PATIENT
  Age: 37 Year
  Sex: Female
  Weight: 82 kg

DRUGS (2)
  1. OROMONE [Suspect]
     Active Substance: ESTRADIOL
     Indication: ORAL CONTRACEPTION
     Dosage: 1 DOSAGE FORM, CYCLE
     Route: 048
     Dates: start: 19981030, end: 20090831
  2. LUTERAN [Suspect]
     Active Substance: CHLORMADINONE ACETATE
     Indication: ORAL CONTRACEPTION
     Dosage: 10 MILLIGRAM, CYCLE
     Route: 048
     Dates: start: 19981030, end: 20090831

REACTIONS (1)
  - Meningeal thickening [Not Recovered/Not Resolved]

NARRATIVE: CASE EVENT DATE: 20200626
